FAERS Safety Report 13774944 (Version 1)
Quarter: 2017Q3

REPORT INFORMATION
  Report Type: Spontaneous
  Country: FR (occurrence: FR)
  Receive Date: 20170721
  Receipt Date: 20170721
  Transmission Date: 20171127
  Serious: Yes (Hospitalization, Other)
  Sender: FDA-Public Use
  Company Number: FR-ELI_LILLY_AND_COMPANY-FR201707003050

PATIENT
  Age: 77 Year
  Sex: Female

DRUGS (3)
  1. ZOPHREN                            /00955301/ [Suspect]
     Active Substance: ONDANSETRON
     Indication: PROPHYLAXIS OF NAUSEA AND VOMITING
     Dosage: UNK, UNKNOWN
     Route: 048
     Dates: start: 2013
  2. GEMZAR [Suspect]
     Active Substance: GEMCITABINE HYDROCHLORIDE
     Indication: ADENOCARCINOMA PANCREAS
     Dosage: UNK UNK, CYCLICAL
     Route: 042
     Dates: start: 20111222, end: 201310
  3. TEVAGRASTIM [Suspect]
     Active Substance: FILGRASTIM
     Indication: PRODUCT USED FOR UNKNOWN INDICATION
     Dosage: UNK, UNKNOWN
     Route: 058
     Dates: start: 201301, end: 201309

REACTIONS (9)
  - Pleural effusion [Unknown]
  - Bronchitis [Unknown]
  - Dyspnoea [Recovered/Resolved]
  - Pulmonary fibrosis [Unknown]
  - Aortic valve incompetence [Unknown]
  - Cor pulmonale [Unknown]
  - Interstitial lung disease [Recovered/Resolved]
  - Malignant neoplasm progression [Unknown]
  - Lymphadenopathy mediastinal [Unknown]

NARRATIVE: CASE EVENT DATE: 201304
